FAERS Safety Report 14068200 (Version 3)
Quarter: 2017Q4

REPORT INFORMATION
  Report Type: Report from Study
  Country: US (occurrence: US)
  Receive Date: 20171010
  Receipt Date: 20171228
  Transmission Date: 20180321
  Serious: Yes (Hospitalization, Other)
  Sender: FDA-Public Use
  Company Number: US-GILEAD-2017-0297091

PATIENT
  Age: 77 Year
  Sex: Female
  Weight: 55.78 kg

DRUGS (12)
  1. REVATIO [Concomitant]
     Active Substance: SILDENAFIL CITRATE
  2. AMBRISENTAN [Suspect]
     Active Substance: AMBRISENTAN
     Indication: SCLERODERMA
  3. COREG [Concomitant]
     Active Substance: CARVEDILOL
  4. KLONOPIN [Concomitant]
     Active Substance: CLONAZEPAM
  5. AMBRISENTAN [Suspect]
     Active Substance: AMBRISENTAN
     Indication: INTERSTITIAL LUNG DISEASE
  6. PRINIVIL [Concomitant]
     Active Substance: LISINOPRIL
  7. PROCARDIA [Concomitant]
     Active Substance: NIFEDIPINE
  8. AMBRISENTAN [Suspect]
     Active Substance: AMBRISENTAN
     Indication: PULMONARY ARTERIAL HYPERTENSION
     Dosage: 10 MG, QD
     Route: 048
     Dates: start: 20170802
  9. LASIX [Concomitant]
     Active Substance: FUROSEMIDE
  10. DESYREL [Concomitant]
     Active Substance: TRAZODONE HYDROCHLORIDE
  11. FOLIC ACID. [Concomitant]
     Active Substance: FOLIC ACID
  12. NORCO [Concomitant]
     Active Substance: ACETAMINOPHEN\HYDROCODONE BITARTRATE

REACTIONS (7)
  - Pain [Unknown]
  - Ascites [Unknown]
  - Pleural effusion [Unknown]
  - Hypertensive crisis [Unknown]
  - Insomnia [Unknown]
  - Abdominal distension [Unknown]
  - Pericardial effusion [Unknown]
